FAERS Safety Report 4378749-9 (Version None)
Quarter: 2004Q2

REPORT INFORMATION
  Report Type: 
  Country: None (occurrence: None)
  Receive Date: 20040609
  Receipt Date: 20040521
  Transmission Date: 20050107
  Serious: Yes (Death)
  Sender: FDA-Public Use
  Company Number: USA040568208

PATIENT
  Sex: Female

DRUGS (1)
  1. XIGRIS (DROTRECOGIN ALFA (ACTIVATED) [Suspect]
     Dates: start: 20040501, end: 20040501

REACTIONS (1)
  - DEATH [None]
